FAERS Safety Report 6235916-7 (Version None)
Quarter: 2009Q2

REPORT INFORMATION
  Report Type: 
  Country: None (occurrence: None)
  Receive Date: 20090617
  Receipt Date: 20090617
  Transmission Date: 20091009
  Serious: No
  Sender: FDA-Public Use
  Company Number: None

PATIENT
  Age: 33 Year
  Sex: Male
  Weight: 89.8122 kg

DRUGS (1)
  1. PHENTERMINE HYDROCHLORIDE [Suspect]
     Indication: WEIGHT DECREASED
     Dosage: 1 A DAY PO
     Route: 048
     Dates: start: 20090501, end: 20090601

REACTIONS (4)
  - CRYING [None]
  - DYSURIA [None]
  - ERECTILE DYSFUNCTION [None]
  - PROSTATOMEGALY [None]
